FAERS Safety Report 7538421-0 (Version None)
Quarter: 2011Q2

REPORT INFORMATION
  Report Type: 
  Country: None (occurrence: None)
  Receive Date: 20110609
  Receipt Date: 20110531
  Transmission Date: 20111010
  Serious: Yes (Hospitalization, Disabling)
  Sender: FDA-Public Use
  Company Number: US-ASTRAZENECA-2010SE23761

PATIENT
  Age: 85 Year
  Sex: Male

DRUGS (1)
  1. NEXIUM [Suspect]
     Route: 048

REACTIONS (6)
  - HEPATIC NEOPLASM MALIGNANT [None]
  - GOUT [None]
  - HIP ARTHROPLASTY [None]
  - LIMB INJURY [None]
  - HIP SURGERY [None]
  - WALKING AID USER [None]
